FAERS Safety Report 17495402 (Version 1)
Quarter: 2020Q1

REPORT INFORMATION
  Report Type: Spontaneous
  Country: US (occurrence: US)
  Receive Date: 20200223
  Receipt Date: 20200223
  Transmission Date: 20200409
  Serious: Yes (Hospitalization)
  Sender: FDA-Public Use
  Company Number: None

PATIENT
  Sex: Female
  Weight: 68.3 kg

DRUGS (2)
  1. ASPIRIN. [Suspect]
     Active Substance: ASPIRIN
     Dates: end: 20190819
  2. ALENDRONATE SODIUM OR ANASTRAZOLE [Concomitant]

REACTIONS (3)
  - Arthralgia [None]
  - Fall [None]
  - Wrist deformity [None]
